FAERS Safety Report 6736003-1 (Version None)
Quarter: 2010Q2

REPORT INFORMATION
  Report Type: 
  Country: None (occurrence: None)
  Receive Date: 20100521
  Receipt Date: 20100513
  Transmission Date: 20101027
  Serious: Yes (Other)
  Sender: FDA-Public Use
  Company Number: US-ELI_LILLY_AND_COMPANY-US201005003814

PATIENT
  Sex: Male

DRUGS (3)
  1. HUMALOG [Suspect]
     Indication: DIABETES MELLITUS
     Dosage: UNK, 2/D
  2. LANTUS [Concomitant]
     Dosage: UNK, EACH EVENING
  3. ASPIRIN [Concomitant]
     Dosage: UNK, DAILY (1/D)

REACTIONS (5)
  - BLINDNESS TRANSIENT [None]
  - BLOOD GLUCOSE DECREASED [None]
  - DIZZINESS [None]
  - TREMOR [None]
  - VISION BLURRED [None]
